FAERS Safety Report 6621097-4 (Version None)
Quarter: 2010Q1

REPORT INFORMATION
  Report Type: 
  Country: None (occurrence: None)
  Receive Date: 20100309
  Receipt Date: 20100226
  Transmission Date: 20100710
  Serious: Yes (Hospitalization)
  Sender: FDA-Public Use
  Company Number: B0638193A

PATIENT
  Sex: Female

DRUGS (4)
  1. AUGMENTIN [Suspect]
     Indication: DRUG USE FOR UNKNOWN INDICATION
     Dosage: 2G PER DAY
     Route: 048
     Dates: start: 20080501, end: 20080503
  2. NIMESULIDE [Concomitant]
  3. LEXOTAN [Concomitant]
  4. ZOREF [Concomitant]

REACTIONS (2)
  - ERYTHEMA [None]
  - PRURITUS [None]
